FAERS Safety Report 9004683 (Version 2)
Quarter: 2013Q1

REPORT INFORMATION
  Report Type: Spontaneous
  Country: GB (occurrence: None)
  Receive Date: 20121227
  Receipt Date: 20130108
  Transmission Date: 20140127
  Serious: Yes (Other)
  Sender: FDA-Public Use
  Company Number: AUR-APL-2012-05494

PATIENT
  Age: 62 Year
  Sex: Male
  Weight: 88 kg

DRUGS (1)
  1. FINASTERIDE (FINASTERIDE) [Suspect]
     Indication: PROSTATOMEGALY
     Route: 048
     Dates: start: 2010

REACTIONS (2)
  - Hypertension [None]
  - Ocular hypertension [None]
